FAERS Safety Report 9443493 (Version 1)
Quarter: 2013Q3

REPORT INFORMATION
  Report Type: Spontaneous
  Country: ES (occurrence: ES)
  Receive Date: 20130806
  Receipt Date: 20130806
  Transmission Date: 20140515
  Serious: Yes (Other)
  Sender: FDA-Public Use
  Company Number: PHHY2011ES87324

PATIENT
  Age: 82 Year
  Sex: Female

DRUGS (7)
  1. PARACETAMOL [Suspect]
     Indication: NASOPHARYNGITIS
  2. METAMIZOL [Concomitant]
  3. DEXTROMETHORPHAN [Concomitant]
  4. CHLORPHENAMINE [Concomitant]
  5. INDAPAMIDE [Concomitant]
  6. INDOMETHACIN [Concomitant]
  7. TOCOPHEROL [Concomitant]

REACTIONS (2)
  - Liver injury [Recovered/Resolved]
  - Thrombocytopenia [Recovered/Resolved]
